FAERS Safety Report 15696306 (Version 2)
Quarter: 2018Q4

REPORT INFORMATION
  Report Type: Report from Study
  Country: US (occurrence: US)
  Receive Date: 20181206
  Receipt Date: 20181228
  Transmission Date: 20190205
  Serious: Yes (Other)
  Sender: FDA-Public Use
  Company Number: US-GILEAD-2018-0375880

PATIENT
  Age: 81 Year
  Sex: Female

DRUGS (7)
  1. DILTIAZEM. [Concomitant]
     Active Substance: DILTIAZEM
     Indication: CARDIAC DISORDER
     Dosage: 120 MG, QD
     Route: 048
     Dates: start: 201809
  2. ALLOPURINOL. [Concomitant]
     Active Substance: ALLOPURINOL
     Dosage: 200 MG, QD
     Route: 048
     Dates: start: 201809
  3. METOPROLOL SUCCINATE. [Concomitant]
     Active Substance: METOPROLOL SUCCINATE
     Indication: CARDIAC DISORDER
     Dosage: 50 MG, QD
     Route: 048
     Dates: start: 201809
  4. IDELALISIB [Suspect]
     Active Substance: IDELALISIB
     Indication: CHRONIC LYMPHOCYTIC LEUKAEMIA
     Dosage: 100 MG, BID
     Route: 048
     Dates: start: 20181116, end: 20181126
  5. RANOLAZINE. [Concomitant]
     Active Substance: RANOLAZINE
     Indication: CARDIAC DISORDER
     Dosage: 500 MG, BID
     Route: 048
     Dates: start: 201809
  6. IDELALISIB [Suspect]
     Active Substance: IDELALISIB
     Indication: NON-HODGKIN^S LYMPHOMA
  7. ISOSORBIDE MONONITRATE. [Concomitant]
     Active Substance: ISOSORBIDE MONONITRATE
     Indication: CARDIAC DISORDER
     Dosage: 60 MG, QD
     Route: 048
     Dates: start: 201809

REACTIONS (12)
  - Throat irritation [Not Recovered/Not Resolved]
  - Wheezing [Not Recovered/Not Resolved]
  - Blood urine present [Recovered/Resolved]
  - Cough [Not Recovered/Not Resolved]
  - Vaginal haemorrhage [Unknown]
  - Malaise [Not Recovered/Not Resolved]
  - Haemorrhage [Unknown]
  - Anxiety [Not Recovered/Not Resolved]
  - Fear [Not Recovered/Not Resolved]
  - Bladder injury [Unknown]
  - Myocardial infarction [Unknown]
  - Fatigue [Not Recovered/Not Resolved]

NARRATIVE: CASE EVENT DATE: 20181120
